FAERS Safety Report 5032058-3 (Version None)
Quarter: 2006Q2

REPORT INFORMATION
  Report Type: 
  Country: None (occurrence: None)
  Receive Date: 20060616
  Receipt Date: 20060602
  Transmission Date: 20061013
  Serious: Yes (Death, Hospitalization)
  Sender: FDA-Public Use
  Company Number: 200613783BWH

PATIENT
  Age: 53 Year
  Sex: Male
  Weight: 71.8 kg

DRUGS (10)
  1. SORAFENIB [Suspect]
     Dosage: 400 MG, QID, ORAL
     Route: 048
     Dates: start: 20060428, end: 20060515
  2. SORAFENIB [Suspect]
     Dosage: 400 MG, QID, ORAL
     Route: 048
     Dates: start: 20060526, end: 20060528
  3. FENTANYL TRANSDERMAL SYSTEM [Concomitant]
  4. FLOMAX [Concomitant]
  5. LEXAPRO [Concomitant]
  6. OXYCODONE HCL [Concomitant]
  7. PREDNISONE [Concomitant]
  8. PROTONIX [Concomitant]
  9. EXOPENEX [Concomitant]
  10. MEGACE [Concomitant]

REACTIONS (19)
  - AORTIC VALVE INCOMPETENCE [None]
  - BLOOD GLUCOSE INCREASED [None]
  - BRONCHIOLITIS [None]
  - CARDIAC VALVE VEGETATION [None]
  - DYSPNOEA [None]
  - ELECTROCARDIOGRAM ST SEGMENT ABNORMAL [None]
  - HAEMOPNEUMOTHORAX [None]
  - NEOPLASM [None]
  - PALMAR-PLANTAR ERYTHRODYSAESTHESIA SYNDROME [None]
  - PERICARDIAL EFFUSION [None]
  - PNEUMONITIS [None]
  - POST PROCEDURAL HAEMORRHAGE [None]
  - PULMONARY HAEMORRHAGE [None]
  - PULMONARY HYPERTENSION [None]
  - PULMONARY THROMBOSIS [None]
  - RESPIRATORY FAILURE [None]
  - SUPRAVENTRICULAR TACHYCARDIA [None]
  - TRICUSPID VALVE INCOMPETENCE [None]
  - VENTRICULAR HYPERTROPHY [None]
